FAERS Safety Report 7278013-4 (Version None)
Quarter: 2011Q1

REPORT INFORMATION
  Report Type: 
  Country: None (occurrence: None)
  Receive Date: 20110207
  Receipt Date: 20110127
  Transmission Date: 20110831
  Serious: Yes (Death, Other)
  Sender: FDA-Public Use
  Company Number: PHHY2011GB07113

PATIENT
  Age: 46 Year
  Sex: Female

DRUGS (3)
  1. METHOCARBAMOL [Concomitant]
  2. TRAMADOL HCL [Suspect]
     Indication: BACK PAIN
  3. TRAMADOL HCL [Suspect]
     Indication: MUSCLE SPASMS

REACTIONS (16)
  - EXTRADURAL ABSCESS [None]
  - STAPHYLOCOCCAL INFECTION [None]
  - SPLENOMEGALY [None]
  - PSOAS ABSCESS [None]
  - MUSCULOSKELETAL STIFFNESS [None]
  - SEPTIC SHOCK [None]
  - CEREBRAL ATROPHY [None]
  - CONFUSIONAL STATE [None]
  - INTERVERTEBRAL DISC DISORDER [None]
  - GRAND MAL CONVULSION [None]
  - GAMMA-GLUTAMYLTRANSFERASE INCREASED [None]
  - RENAL FAILURE [None]
  - AGITATION [None]
  - GAIT DISTURBANCE [None]
  - COMA [None]
  - BLOOD AMYLASE INCREASED [None]
